FAERS Safety Report 6247377-2 (Version None)
Quarter: 2009Q2

REPORT INFORMATION
  Report Type: 
  Country: None (occurrence: None)
  Receive Date: 20090626
  Receipt Date: 20090622
  Transmission Date: 20091009
  Serious: Yes (Hospitalization)
  Sender: FDA-Public Use
  Company Number: B0580235A

PATIENT
  Age: 6 Year
  Sex: Male
  Weight: 27 kg

DRUGS (4)
  1. AMOXICILLIN AND CLAVULANATE POTASSIUM [Suspect]
     Indication: BRONCHITIS
     Dosage: 1G THREE TIMES PER DAY
     Route: 048
     Dates: start: 20090618, end: 20090620
  2. AUGMENTIN [Suspect]
     Indication: BRONCHITIS
     Dosage: 500MG THREE TIMES PER DAY
     Route: 048
     Dates: start: 20090620, end: 20090622
  3. CELESTENE [Concomitant]
     Indication: BRONCHITIS
     Route: 048
     Dates: start: 20090618
  4. PARACETAMOL [Concomitant]
     Route: 048
     Dates: start: 20090620

REACTIONS (4)
  - DRUG DISPENSING ERROR [None]
  - ERYTHEMA [None]
  - HYPERSENSITIVITY [None]
  - OVERDOSE [None]
